FAERS Safety Report 7115241-2 (Version None)
Quarter: 2010Q4

REPORT INFORMATION
  Report Type: 
  Country: None (occurrence: None)
  Receive Date: 20101122
  Receipt Date: 20100128
  Transmission Date: 20110411
  Serious: No
  Sender: FDA-Public Use
  Company Number: A0836508A

PATIENT
  Age: 41 Year
  Sex: Male

DRUGS (3)
  1. EVOCLIN [Suspect]
     Route: 061
     Dates: start: 20091101, end: 20091122
  2. LUXIQ [Suspect]
     Route: 061
     Dates: start: 20091101, end: 20091122
  3. NONE [Concomitant]

REACTIONS (3)
  - DRUG INEFFECTIVE [None]
  - OFF LABEL USE [None]
  - PRODUCT QUALITY ISSUE [None]
